FAERS Safety Report 10515432 (Version 1)
Quarter: 2014Q4

REPORT INFORMATION
  Report Type: Spontaneous
  Country: FR (occurrence: FR)
  Receive Date: 20141014
  Receipt Date: 20141014
  Transmission Date: 20150528
  Serious: Yes (Hospitalization)
  Sender: FDA-Public Use
  Company Number: FR-ASTRAZENECA-2014SE76843

PATIENT
  Age: 34281 Day
  Sex: Male

DRUGS (18)
  1. ZESTRIL [Suspect]
     Active Substance: LISINOPRIL
     Route: 048
     Dates: end: 20140824
  2. TEMERIT [Concomitant]
     Active Substance: NEBIVOLOL
  3. PLAVIX [Concomitant]
     Active Substance: CLOPIDOGREL BISULFATE
  4. DIFFU K [Interacting]
     Active Substance: POTASSIUM CHLORIDE
     Route: 048
     Dates: start: 201408, end: 20140824
  5. KARDEGIC [Concomitant]
     Active Substance: ASPIRIN LYSINE
  6. TAHOR [Concomitant]
     Active Substance: ATORVASTATIN CALCIUM
  7. BURINEX [Concomitant]
     Active Substance: BUMETANIDE
     Dates: end: 201408
  8. INEXIUM [Concomitant]
     Active Substance: ESOMEPRAZOLE
  9. STAGID [Concomitant]
     Active Substance: METFORMIN PAMOATE
     Dates: end: 201408
  10. LASILIX [Concomitant]
     Active Substance: FUROSEMIDE
     Route: 048
     Dates: start: 201408, end: 20140824
  11. ALFUZOSINE [Concomitant]
     Active Substance: ALFUZOSIN HYDROCHLORIDE
     Route: 048
     Dates: start: 201408
  12. LANTUS [Concomitant]
     Active Substance: INSULIN GLARGINE
  13. REPAGLINIDE. [Concomitant]
     Active Substance: REPAGLINIDE
  14. PREGABALINE [Concomitant]
     Active Substance: PREGABALIN
  15. INSPRA [Interacting]
     Active Substance: EPLERENONE
     Route: 048
     Dates: start: 201408, end: 20140824
  16. ALLOPURINOL. [Concomitant]
     Active Substance: ALLOPURINOL
  17. NATISPRAY [Concomitant]
     Active Substance: NITROGLYCERIN
  18. NOVORAPID [Concomitant]
     Active Substance: INSULIN ASPART

REACTIONS (2)
  - Hyperkalaemia [Recovered/Resolved]
  - Drug interaction [Unknown]

NARRATIVE: CASE EVENT DATE: 20140824
